FAERS Safety Report 5974595-0 (Version None)
Quarter: 2008Q4

REPORT INFORMATION
  Report Type: 
  Country: None (occurrence: None)
  Receive Date: 20081201
  Receipt Date: 20080201
  Transmission Date: 20090506
  Serious: No
  Sender: FDA-Public Use
  Company Number: US-AMGEN-KDL263551

PATIENT
  Sex: Female

DRUGS (3)
  1. ENBREL [Suspect]
     Indication: JUVENILE ARTHRITIS
     Route: 058
     Dates: start: 20071013
  2. ENBREL [Suspect]
     Indication: DRUG USE FOR UNKNOWN INDICATION
  3. PLAQUENIL [Concomitant]
     Dates: start: 20070301

REACTIONS (5)
  - BLOOD PRESSURE DECREASED [None]
  - EXPOSURE TO NOISE [None]
  - MENTAL IMPAIRMENT [None]
  - VERTIGO [None]
  - VISUAL IMPAIRMENT [None]
